FAERS Safety Report 9467396 (Version 1)
Quarter: 2013Q3

REPORT INFORMATION
  Report Type: Spontaneous
  Country: US (occurrence: None)
  Receive Date: 20130819
  Receipt Date: 20130819
  Transmission Date: 20140515
  Serious: No
  Sender: FDA-Public Use
  Company Number: None

PATIENT
  Age: 66 Year
  Sex: Female
  Weight: 70.5 kg

DRUGS (1)
  1. TRIAMCINOLONE ACETONIDE [Suspect]
     Dosage: 1 SQUIRT IN EACH NOSTRIL 1XDAY  SPRAY IN NOSE
     Route: 045
     Dates: start: 20130612, end: 20130813

REACTIONS (3)
  - Product odour abnormal [None]
  - Nasal congestion [None]
  - Rhinorrhoea [None]
